APPROVED DRUG PRODUCT: ESZOPICLONE
Active Ingredient: ESZOPICLONE
Strength: 2MG
Dosage Form/Route: TABLET;ORAL
Application: A091151 | Product #002 | TE Code: AB
Applicant: MYLAN PHARMACEUTICALS INC
Approved: Mar 26, 2013 | RLD: No | RS: No | Type: RX